FAERS Safety Report 4414216-1 (Version None)
Quarter: 2004Q3

REPORT INFORMATION
  Report Type: 
  Country: None (occurrence: None)
  Receive Date: 20040729
  Receipt Date: 20040715
  Transmission Date: 20050211
  Serious: Yes (Hospitalization)
  Sender: FDA-Public Use
  Company Number: 2004-BP-05943YA

PATIENT
  Age: 73 Year
  Sex: Male

DRUGS (3)
  1. HARNAL (TAMSULOSIN) [Suspect]
     Indication: BENIGN PROSTATIC HYPERPLASIA
     Dosage: 2 MG
     Route: 048
     Dates: start: 19990601, end: 20020101
  2. HARNAL (TAMSULOSIN) [Suspect]
     Indication: NEUROGENIC BLADDER
     Dosage: 2 MG
     Route: 048
     Dates: start: 19990601, end: 20020101
  3. UBRETID (DISTIGMINE BROMIDE) [Suspect]
     Route: 048
     Dates: end: 20000526

REACTIONS (14)
  - BLOOD CHOLINESTERASE DECREASED [None]
  - BLOOD CREATINE PHOSPHOKINASE INCREASED [None]
  - BRADYCARDIA [None]
  - CYSTITIS [None]
  - DEPRESSED LEVEL OF CONSCIOUSNESS [None]
  - DIARRHOEA [None]
  - DRUG TOXICITY [None]
  - HEPATIC FUNCTION ABNORMAL [None]
  - MIOSIS [None]
  - MUSCLE RIGIDITY [None]
  - MYOGLOBIN BLOOD INCREASED [None]
  - PUPILLARY REFLEX IMPAIRED [None]
  - RENAL IMPAIRMENT [None]
  - SOMNOLENCE [None]
